FAERS Safety Report 4457480-5 (Version None)
Quarter: 2004Q3

REPORT INFORMATION
  Report Type: 
  Country: None (occurrence: None)
  Receive Date: 20040921
  Receipt Date: 20040910
  Transmission Date: 20050211
  Serious: Yes (Other)
  Sender: FDA-Public Use
  Company Number: A0525248A

PATIENT
  Age: 73 Year
  Sex: Male

DRUGS (6)
  1. NAVELBINE [Suspect]
     Indication: NON-SMALL CELL LUNG CANCER
     Dosage: CYCLIC/INTRAVENOUS
     Route: 042
     Dates: start: 20040201
  2. PREDNISONE [Concomitant]
  3. CELECOXIB [Concomitant]
  4. WARFARIN SODIUM [Concomitant]
  5. PRAVACHOL [Concomitant]
  6. CYCLOBENZAPRINE HCL [Concomitant]

REACTIONS (7)
  - ASTHENIA [None]
  - CEREBROVASCULAR ACCIDENT [None]
  - CHEST PAIN [None]
  - HYPOAESTHESIA [None]
  - NEUROPATHY PERIPHERAL [None]
  - PARAESTHESIA [None]
  - PARALYSIS [None]
